FAERS Safety Report 21372158 (Version 1)
Quarter: 2022Q3

REPORT INFORMATION
  Report Type: Spontaneous
  Country: CN (occurrence: CN)
  Receive Date: 20220923
  Receipt Date: 20220923
  Transmission Date: 20221027
  Serious: Yes (Other)
  Sender: FDA-Public Use
  Company Number: CN-009507513-2209CHN006610

PATIENT
  Sex: Male

DRUGS (2)
  1. CILASTATIN SODIUM\IMIPENEM [Suspect]
     Active Substance: CILASTATIN SODIUM\IMIPENEM
     Indication: Pneumonia
     Dosage: 1 BOTTLE, THREE TIMES A DAY
     Route: 041
     Dates: start: 20220602, end: 20220607
  2. VORICONAZOLE [Suspect]
     Active Substance: VORICONAZOLE
     Indication: Pneumonia
     Dosage: 250 MG, TWICE A DAY
     Route: 041
     Dates: start: 20220602, end: 20220608

REACTIONS (4)
  - Epilepsy [Recovered/Resolved]
  - Encephalopathy [Recovered/Resolved]
  - Somnolence [Unknown]
  - Anaemia [Unknown]

NARRATIVE: CASE EVENT DATE: 20220607
